FAERS Safety Report 24321920 (Version 1)
Quarter: 2024Q3

REPORT INFORMATION
  Report Type: Spontaneous
  Country: US (occurrence: US)
  Receive Date: 20240916
  Receipt Date: 20240916
  Transmission Date: 20241017
  Serious: No
  Sender: BRISTOL MYERS SQUIBB
  Company Number: US-BRISTOL-MYERS SQUIBB COMPANY-2024-146138

PATIENT
  Age: 50 Year
  Sex: Female
  Weight: 73.98 kg

DRUGS (1)
  1. ELIQUIS [Suspect]
     Active Substance: APIXABAN
     Indication: Splenic infarction
     Route: 048
     Dates: start: 20240522

REACTIONS (1)
  - Off label use [Unknown]
